FAERS Safety Report 13677742 (Version 3)
Quarter: 2017Q3

REPORT INFORMATION
  Report Type: Spontaneous
  Country: CN (occurrence: CN)
  Receive Date: 20170622
  Receipt Date: 20170929
  Transmission Date: 20171127
  Serious: Yes (Hospitalization, Other)
  Sender: FDA-Public Use
  Company Number: CN-PFIZER INC-2017269403

PATIENT
  Age: 31 Year
  Sex: Male

DRUGS (3)
  1. CISPLATIN. [Suspect]
     Active Substance: CISPLATIN
     Indication: OROPHARYNGEAL CANCER STAGE IV
     Dosage: 25 MG/M2, CYCLIC (ON DAYS 1-3)
     Dates: start: 201106
  2. PACLITAXEL. [Suspect]
     Active Substance: PACLITAXEL
     Indication: OROPHARYNGEAL CANCER STAGE IV
     Dosage: 135 MG/M2, CYCLIC (DAY 1)
     Dates: start: 201106
  3. GIMERACIL W/OTERACIL POTASSIUM/TEGAFUR [Suspect]
     Active Substance: GIMERACIL\OTERACIL\TEGAFUR
     Indication: OROPHARYNGEAL CANCER STAGE IV
     Dosage: 40 MG/M2, CYCLIC (ON DAYS 1-14, 21 DAYS EACH COURSE)
     Route: 048
     Dates: start: 201106

REACTIONS (3)
  - Gastrointestinal disorder [Recovered/Resolved]
  - Leukopenia [Recovered/Resolved]
  - Oral disorder [Recovered/Resolved]
